FAERS Safety Report 22626902 (Version 2)
Quarter: 2023Q2

REPORT INFORMATION
  Report Type: Spontaneous
  Country: PT (occurrence: PT)
  Receive Date: 20230622
  Receipt Date: 20230627
  Transmission Date: 20230722
  Serious: Yes (Hospitalization, Other)
  Sender: FDA-Public Use
  Company Number: PT-FreseniusKabi-FK202307817

PATIENT
  Age: 60 Year
  Sex: Male

DRUGS (4)
  1. TRAMADOL HYDROCHLORIDE [Suspect]
     Active Substance: TRAMADOL HYDROCHLORIDE
     Indication: Spinal column injury
     Dosage: UNK
     Route: 065
  2. ETORICOXIB [Suspect]
     Active Substance: ETORICOXIB
     Indication: Spinal column injury
     Dosage: UNK
     Route: 065
  3. MELOXICAM [Suspect]
     Active Substance: MELOXICAM
     Indication: Spinal column injury
     Dosage: UNK
     Route: 065
  4. THIOCOLCHICOSIDE [Concomitant]
     Active Substance: THIOCOLCHICOSIDE
     Indication: Spinal column injury
     Dosage: UNK
     Route: 065

REACTIONS (10)
  - Erythema multiforme [Recovering/Resolving]
  - Rash erythematous [Recovering/Resolving]
  - Stevens-Johnson syndrome [Recovering/Resolving]
  - Drug eruption [Recovering/Resolving]
  - Tongue injury [Recovering/Resolving]
  - Oral disorder [Recovering/Resolving]
  - Arthritis [Recovering/Resolving]
  - Pharyngeal lesion [Recovering/Resolving]
  - Lip oedema [Recovering/Resolving]
  - Blister [Recovering/Resolving]
